FAERS Safety Report 5412515-8 (Version None)
Quarter: 2007Q3

REPORT INFORMATION
  Report Type: 
  Country: None (occurrence: None)
  Receive Date: 20070813
  Receipt Date: 20070809
  Transmission Date: 20080115
  Serious: Yes (Death)
  Sender: FDA-Public Use
  Company Number: A0669206A

PATIENT
  Age: 94 Year
  Sex: Female

DRUGS (6)
  1. FLONASE [Suspect]
     Indication: RHINITIS ALLERGIC
     Route: 045
     Dates: start: 20000101, end: 20060910
  2. SYNTHROID [Concomitant]
  3. DILANTIN KAPSEAL [Concomitant]
  4. VASOTEC [Concomitant]
  5. UNSPECIFIED MEDICATION [Concomitant]
  6. NEXIUM [Concomitant]

REACTIONS (1)
  - DEATH [None]
